FAERS Safety Report 5361491-5 (Version None)
Quarter: 2007Q2

REPORT INFORMATION
  Report Type: 
  Country: None (occurrence: None)
  Receive Date: 20070530
  Receipt Date: 20070122
  Transmission Date: 20071010
  Serious: No
  Sender: FDA-Public Use
  Company Number: 2007PV027641

PATIENT
  Age: 65 Year
  Sex: Male
  Weight: 102.0593 kg

DRUGS (7)
  1. BYETTA [Suspect]
     Indication: DIABETES MELLITUS NON-INSULIN-DEPENDENT
     Dosage: 5 MCG;SC 10 MCG;BID;SC 5 MCG;BID;SC
     Route: 058
     Dates: start: 20061201, end: 20061231
  2. BYETTA [Suspect]
     Indication: DIABETES MELLITUS NON-INSULIN-DEPENDENT
     Dosage: 5 MCG;SC 10 MCG;BID;SC 5 MCG;BID;SC
     Route: 058
     Dates: start: 20061101
  3. BYETTA [Suspect]
     Indication: DIABETES MELLITUS NON-INSULIN-DEPENDENT
     Dosage: 5 MCG;SC 10 MCG;BID;SC 5 MCG;BID;SC
     Route: 058
     Dates: start: 20070101
  4. BYETTA [Suspect]
  5. METFORMIN HCL [Concomitant]
  6. ACTOS [Concomitant]
  7. GLYBURIDE [Concomitant]

REACTIONS (2)
  - BLOOD GLUCOSE INCREASED [None]
  - WEIGHT DECREASED [None]
